FAERS Safety Report 7465802-6 (Version None)
Quarter: 2011Q1

REPORT INFORMATION
  Report Type: 
  Country: None (occurrence: None)
  Receive Date: 20110302
  Receipt Date: 20100913
  Transmission Date: 20110831
  Serious: Yes (Hospitalization)
  Sender: FDA-Public Use
  Company Number: 163-21880-10080372

PATIENT
  Age: 76 Year
  Sex: Female

DRUGS (16)
  1. POTASSIUM CITRATE [Concomitant]
  2. HYDROCHLOROTHIAZIDE [Concomitant]
  3. AMOXICILLIN [Concomitant]
  4. ZOCOR [Concomitant]
  5. COLCHICINE [Concomitant]
  6. ALLOPURINOL [Concomitant]
  7. PRINZIDE [Concomitant]
  8. NORVASC [Concomitant]
  9. FERROUS SULFATE TAB [Concomitant]
  10. LORTAB (VICODIN) [Concomitant]
  11. REVLIMID [Suspect]
     Indication: MULTIPLE MYELOMA
     Dosage: 25 MG, DAILY X 21 DAYS, PO, 25 MG, DAILY X 21 DAYS, PO
     Route: 048
     Dates: start: 20091016
  12. REVLIMID [Suspect]
     Indication: MULTIPLE MYELOMA
     Dosage: 25 MG, DAILY X 21 DAYS, PO, 25 MG, DAILY X 21 DAYS, PO
     Route: 048
     Dates: start: 20090826, end: 20090921
  13. PLAVIX [Concomitant]
  14. DECADRON [Concomitant]
  15. DOXAZOSIN MESYLATE [Concomitant]
  16. COREG [Concomitant]

REACTIONS (2)
  - TREATMENT NONCOMPLIANCE [None]
  - MUSCLE SPASMS [None]
